FAERS Safety Report 8262434-7 (Version None)
Quarter: 2012Q2

REPORT INFORMATION
  Report Type: 
  Country: None (occurrence: None)
  Receive Date: 20120405
  Receipt Date: 20120326
  Transmission Date: 20120825
  Serious: Yes (Other)
  Sender: FDA-Public Use
  Company Number: US-JNJFOC-20120313411

PATIENT
  Sex: Female
  Weight: 92.53 kg

DRUGS (13)
  1. PROTONIX [Concomitant]
     Indication: CROHN'S DISEASE
     Route: 048
     Dates: start: 20110101
  2. DEPO-PROVERA [Concomitant]
     Indication: ENDOMETRIOSIS
     Route: 030
     Dates: start: 20050101
  3. REMICADE [Suspect]
     Route: 042
  4. BENADRYL [Concomitant]
     Indication: ADVERSE DRUG REACTION
     Route: 048
     Dates: start: 20120301, end: 20120301
  5. PENTASA [Concomitant]
     Indication: CROHN'S DISEASE
     Dosage: STRENGTH: 500 MG
     Route: 048
     Dates: start: 20080101
  6. DILANTIN [Concomitant]
     Indication: FIBROMYALGIA
     Route: 048
     Dates: start: 20110101
  7. VITAMIN D [Concomitant]
     Indication: NUTRITIONAL SUPPORT
     Route: 048
     Dates: start: 20120201
  8. REMICADE [Suspect]
     Indication: ANKYLOSING SPONDYLITIS
     Route: 042
     Dates: start: 20120305, end: 20120305
  9. REMICADE [Suspect]
     Route: 042
  10. REMICADE [Suspect]
     Indication: CROHN'S DISEASE
     Route: 042
     Dates: start: 20120305, end: 20120305
  11. TYLENOL [Concomitant]
     Indication: PAIN
     Route: 048
     Dates: start: 20120301, end: 20120301
  12. MERCAPTOPURINE [Concomitant]
     Indication: CROHN'S DISEASE
     Dosage: STRENGTH: 50 MG
     Route: 048
     Dates: start: 20110101
  13. VITAMIN B-12 [Concomitant]
     Indication: NUTRITIONAL SUPPORT
     Route: 060
     Dates: start: 20110101

REACTIONS (6)
  - INFLUENZA [None]
  - ABNORMAL LOSS OF WEIGHT [None]
  - HEPATIC ENZYME INCREASED [None]
  - RHEUMATOID ARTHRITIS [None]
  - ACTIVATED PARTIAL THROMBOPLASTIN TIME PROLONGED [None]
  - ABDOMINAL DISCOMFORT [None]
